FAERS Safety Report 8363568-9 (Version None)
Quarter: 2012Q1

REPORT INFORMATION
  Report Type: 
  Country: None (occurrence: None)
  Receive Date: 20120323
  Receipt Date: 20110803
  Transmission Date: 20120608
  Serious: Yes (Hospitalization)
  Sender: FDA-Public Use
  Company Number: 163-21880-11052196

PATIENT
  Age: 76 Year
  Sex: Female

DRUGS (16)
  1. REVLIMID [Suspect]
     Indication: MULTIPLE MYELOMA
     Dosage: 10 MG, QOD, PO
     Route: 048
     Dates: start: 20101201
  2. TRAMADOL HCL [Concomitant]
  3. NOVOLOG [Concomitant]
  4. MORPHINE [Concomitant]
  5. CRESTOR (ROSVUASTATIN) [Concomitant]
  6. LEVOTHYROXINE SODIUM [Concomitant]
  7. LASIX [Concomitant]
  8. GLUCOSAMINE (GLUCOSAMINE) [Concomitant]
  9. VITAMIN B12 [Concomitant]
  10. LEVEMIR [Concomitant]
  11. NTG (GLYCERYL TRINITRATE) [Concomitant]
  12. OMEPRAZOLE (OMPRAZOLE) [Concomitant]
  13. TOPROL-XL [Concomitant]
  14. DEXAMETHASONE [Concomitant]
  15. LEVAQUIN [Concomitant]
  16. MULTIVITAMIN [Concomitant]

REACTIONS (2)
  - DYSPNOEA [None]
  - BACK PAIN [None]
